FAERS Safety Report 9228709 (Version 2)
Quarter: 2013Q2

REPORT INFORMATION
  Report Type: Spontaneous
  Country: DE (occurrence: DE)
  Receive Date: 20130412
  Receipt Date: 20130528
  Transmission Date: 20140414
  Serious: Yes (Other)
  Sender: FDA-Public Use
  Company Number: DE-JNJFOC-20130401212

PATIENT
  Age: 23 Year
  Sex: Male

DRUGS (4)
  1. DOXORUBICIN [Suspect]
     Indication: NEOPLASM
     Route: 042
  2. DOXORUBICIN [Suspect]
     Indication: CHEMOTHERAPY
     Route: 042
  3. IFOSFAMIDE [Suspect]
     Indication: NEOPLASM
     Route: 065
  4. IFOSFAMIDE [Suspect]
     Indication: CHEMOTHERAPY
     Route: 065

REACTIONS (2)
  - Haematotoxicity [Unknown]
  - Off label use [Unknown]
